FAERS Safety Report 8790258 (Version 1)
Quarter: 2012Q4

REPORT INFORMATION
  Report Type: Report from Study
  Country: US (occurrence: US)
  Receive Date: 20120917
  Receipt Date: 20120917
  Transmission Date: 20130627
  Serious: Yes (Other)
  Sender: FDA-Public Use
  Company Number: US-JNJFOC-20120905047

PATIENT
  Sex: Female
  Weight: 87.54 kg

DRUGS (1)
  1. REMICADE [Suspect]
     Indication: RHEUMATOID ARTHRITIS
     Route: 042
     Dates: start: 201202, end: 2012

REACTIONS (3)
  - Lichen planus [Not Recovered/Not Resolved]
  - Surgery [Not Recovered/Not Resolved]
  - Stomatitis [Not Recovered/Not Resolved]
